FAERS Safety Report 16719098 (Version 2)
Quarter: 2019Q3

REPORT INFORMATION
  Report Type: Spontaneous
  Country: IE (occurrence: IE)
  Receive Date: 20190820
  Receipt Date: 20190828
  Transmission Date: 20191005
  Serious: Yes (Life-Threatening, Hospitalization, Other)
  Sender: FDA-Public Use
  Company Number: IE-ACCORD-151922

PATIENT
  Age: 60 Year
  Sex: Male

DRUGS (2)
  1. GEMCITABINE/GEMCITABINE HYDROCHLORIDE [Suspect]
     Active Substance: GEMCITABINE\GEMCITABINE HYDROCHLORIDE
     Indication: TRANSITIONAL CELL CARCINOMA
  2. CISPLATIN. [Suspect]
     Active Substance: CISPLATIN
     Indication: TRANSITIONAL CELL CARCINOMA

REACTIONS (5)
  - Ventricular hypokinesia [Recovered/Resolved]
  - Thrombocytopenia [Recovered/Resolved]
  - Cardiac ventricular thrombosis [Recovered/Resolved]
  - Ischaemic stroke [Recovered/Resolved]
  - Hypomagnesaemia [Recovered/Resolved]
